FAERS Safety Report 4572560-1 (Version None)
Quarter: 2005Q1

REPORT INFORMATION
  Report Type: 
  Country: None (occurrence: None)
  Receive Date: 20050208
  Receipt Date: 20050127
  Transmission Date: 20050727
  Serious: Yes (Hospitalization)
  Sender: FDA-Public Use
  Company Number: US-JNJFOC-20050200249

PATIENT
  Sex: Female

DRUGS (11)
  1. INFLIXIMAB [Suspect]
     Indication: RHEUMATOID ARTHRITIS
     Route: 042
  2. METHOTREXATE [Concomitant]
  3. CELEBREX [Concomitant]
  4. INSULIN [Concomitant]
  5. ASPIRIN [Concomitant]
  6. ZOCOR [Concomitant]
  7. MONOPRIL [Concomitant]
  8. TOPROL-XL [Concomitant]
  9. PREVACID [Concomitant]
  10. FOLIC ACID [Concomitant]
  11. TYLENOL [Concomitant]

REACTIONS (2)
  - ANGIOPLASTY [None]
  - CHEST DISCOMFORT [None]
